FAERS Safety Report 5388025-3 (Version None)
Quarter: 2007Q3

REPORT INFORMATION
  Report Type: 
  Country: None (occurrence: None)
  Receive Date: 20070716
  Receipt Date: 20070710
  Transmission Date: 20080115
  Serious: Yes (Other)
  Sender: FDA-Public Use
  Company Number: US-MERCK-0703USA03573

PATIENT
  Age: 65 Year
  Sex: Female

DRUGS (3)
  1. FOSAMAX [Suspect]
     Indication: OSTEOPOROSIS
     Route: 048
     Dates: start: 20040301, end: 20050101
  2. PREDNISONE [Suspect]
     Indication: TEMPORAL ARTERITIS
     Route: 048
     Dates: start: 20031201, end: 20041209
  3. PREDNISONE [Suspect]
     Route: 048
     Dates: start: 20050101

REACTIONS (30)
  - ACUTE SINUSITIS [None]
  - ALLERGY TO PLANTS [None]
  - ANXIETY [None]
  - CHEST PAIN [None]
  - CONVULSION [None]
  - CYST [None]
  - DEPRESSION [None]
  - DERMATITIS ALLERGIC [None]
  - DRUG ERUPTION [None]
  - FIBROMYALGIA [None]
  - FOOD ALLERGY [None]
  - GASTRITIS [None]
  - GASTROOESOPHAGEAL REFLUX DISEASE [None]
  - GIARDIASIS [None]
  - HERPES ZOSTER [None]
  - HYPERHIDROSIS [None]
  - INTERVERTEBRAL DISC DEGENERATION [None]
  - IODINE ALLERGY [None]
  - LABORATORY TEST ABNORMAL [None]
  - MELANOCYTIC NAEVUS [None]
  - OSTEOARTHRITIS [None]
  - OSTEOMYELITIS [None]
  - OSTEONECROSIS [None]
  - SACROILIITIS [None]
  - SINUSITIS [None]
  - SKIN LESION [None]
  - SYNCOPE [None]
  - TACHYCARDIA [None]
  - TEMPORAL ARTERITIS [None]
  - UPPER RESPIRATORY TRACT INFECTION [None]
